FAERS Safety Report 13251689 (Version 4)
Quarter: 2018Q2

REPORT INFORMATION
  Report Type: Spontaneous
  Country: US (occurrence: US)
  Receive Date: 20170220
  Receipt Date: 20180518
  Transmission Date: 20180711
  Serious: Yes (Other)
  Sender: FDA-Public Use
  Company Number: US-PFIZER INC-2016258674

PATIENT
  Age: 55 Year
  Sex: Male
  Weight: 88.45 kg

DRUGS (7)
  1. FLEXERIL [Concomitant]
     Active Substance: CYCLOBENZAPRINE HYDROCHLORIDE
     Indication: MUSCLE SPASMS
     Dosage: 10 MG, THREE TIMES A DAY
     Route: 048
  2. LYRICA [Suspect]
     Active Substance: PREGABALIN
     Indication: NEURALGIA
     Dosage: 300 MG, DAILY (EVERYDAY)
     Dates: start: 201512, end: 2016
  3. LYRICA [Suspect]
     Active Substance: PREGABALIN
     Indication: SACRAL RADICULOPATHY
     Dosage: TAKING IT SPORADICALLY
     Dates: start: 2016, end: 20160511
  4. LYRICA [Suspect]
     Active Substance: PREGABALIN
     Dosage: 150 MG, THREE TIMES A DAY (1 CAP(S) 90 DAYS)
     Route: 048
  5. XANAX [Concomitant]
     Active Substance: ALPRAZOLAM
     Indication: ANXIETY
     Dosage: 1 MG, THREE TIMES A DAY
     Route: 048
  6. HYDROCODONE [Concomitant]
     Active Substance: HYDROCODONE
     Indication: PAIN
     Dosage: 10 MG, 6 TIMES DAILY
     Route: 048
  7. AMBIEN [Concomitant]
     Active Substance: ZOLPIDEM TARTRATE
     Indication: INSOMNIA
     Dosage: 10 MG, ONCE A DAY (AT NIGHT)
     Route: 048

REACTIONS (3)
  - Osteomyelitis [Unknown]
  - Intentional product misuse [Unknown]
  - Gait inability [Unknown]
